FAERS Safety Report 17005594 (Version 4)
Quarter: 2020Q1

REPORT INFORMATION
  Report Type: Report from Study
  Country: US (occurrence: US)
  Receive Date: 20191107
  Receipt Date: 20200219
  Transmission Date: 20200409
  Serious: Yes (Other)
  Sender: FDA-Public Use
  Company Number: US-GLAXOSMITHKLINE-US2019TSO170831

PATIENT
  Sex: Male
  Weight: 74 kg

DRUGS (5)
  1. NIRAPARIB [Suspect]
     Active Substance: NIRAPARIB
     Dosage: 200 MG DAILY AT NOON WITH FOOD
     Dates: start: 20191021
  2. NIRAPARIB [Suspect]
     Active Substance: NIRAPARIB
     Dosage: 300 MG, QD
     Route: 048
     Dates: start: 20200121
  3. NIRAPARIB [Suspect]
     Active Substance: NIRAPARIB
     Dosage: 300 MG, QD
     Route: 048
     Dates: start: 20191014
  4. NIRAPARIB [Suspect]
     Active Substance: NIRAPARIB
     Dosage: 200 MG, QD
     Route: 048
  5. NIRAPARIB [Suspect]
     Active Substance: NIRAPARIB
     Indication: PROSTATE CANCER
     Dosage: 300 MG, DAILY PM WITHOUT FOOD
     Route: 048
     Dates: start: 20190905, end: 20190927

REACTIONS (14)
  - Fatigue [Not Recovered/Not Resolved]
  - Weight decreased [Unknown]
  - Dizziness [Recovering/Resolving]
  - Platelet count decreased [Unknown]
  - Ageusia [Unknown]
  - Bowel movement irregularity [Unknown]
  - Delusion [Unknown]
  - Constipation [Unknown]
  - Taste disorder [Unknown]
  - Insomnia [Unknown]
  - Hallucination [Unknown]
  - Nightmare [Unknown]
  - Product use in unapproved indication [Unknown]
  - Decreased appetite [Unknown]
